FAERS Safety Report 22530094 (Version 1)
Quarter: 2023Q2

REPORT INFORMATION
  Report Type: Spontaneous
  Country: US (occurrence: None)
  Receive Date: 20230606
  Receipt Date: 20230606
  Transmission Date: 20230722
  Serious: Yes (Disabling)
  Sender: FDA-Public Use
  Company Number: None

PATIENT
  Age: 29 Year
  Sex: Male
  Weight: 81.65 kg

DRUGS (1)
  1. CIPRO [Suspect]
     Active Substance: CIPROFLOXACIN HYDROCHLORIDE
     Indication: Rash
     Dosage: OTHER FREQUENCY : EVERY 14 DAYS ;?
     Route: 048
     Dates: start: 201409, end: 201410

REACTIONS (14)
  - Palpitations [None]
  - Anxiety [None]
  - Arthralgia [None]
  - Arthralgia [None]
  - Neck pain [None]
  - Headache [None]
  - Back pain [None]
  - Tendon disorder [None]
  - Arthralgia [None]
  - Plantar fasciitis [None]
  - Impaired driving ability [None]
  - Impaired work ability [None]
  - Gait disturbance [None]
  - Mitochondrial cytopathy [None]
